FAERS Safety Report 4829019-3 (Version None)
Quarter: 2005Q4

REPORT INFORMATION
  Report Type: 
  Country: None (occurrence: None)
  Receive Date: 20051014
  Receipt Date: 20050701
  Transmission Date: 20060501
  Serious: No
  Sender: FDA-Public Use
  Company Number: 2005SP003032

PATIENT
  Age: 58 Year
  Sex: Female
  Weight: 56.6996 kg

DRUGS (4)
  1. LUNESTA [Suspect]
     Indication: INSOMNIA
     Dosage: 1 MG;PRN;ORAL, 1.5 MG;PRN;ORAL
     Route: 048
     Dates: start: 20050601, end: 20050101
  2. LUNESTA [Suspect]
     Indication: INSOMNIA
     Dosage: 1 MG;PRN;ORAL, 1.5 MG;PRN;ORAL
     Route: 048
     Dates: start: 20050101
  3. ALENDRONATE SODIUM [Concomitant]
  4. VITAMINS [Concomitant]

REACTIONS (1)
  - DYSGEUSIA [None]
